FAERS Safety Report 7558913-8 (Version None)
Quarter: 2011Q2

REPORT INFORMATION
  Report Type: 
  Country: None (occurrence: None)
  Receive Date: 20110621
  Receipt Date: 20110608
  Transmission Date: 20111010
  Serious: Yes (Hospitalization)
  Sender: FDA-Public Use
  Company Number: US-JNJFOC-20101104775

PATIENT
  Sex: Female
  Weight: 44.5 kg

DRUGS (9)
  1. GROWTH HORMONE [Concomitant]
  2. REMICADE [Suspect]
     Route: 042
     Dates: start: 20100529
  3. REMICADE [Suspect]
     Indication: CROHN'S DISEASE
     Route: 042
     Dates: start: 20090430
  4. PROBIOTICS [Concomitant]
  5. ANTIBIOTICS [Concomitant]
     Indication: INFLAMMATORY BOWEL DISEASE
  6. METHOTREXATE [Concomitant]
  7. CORTICOSTEROIDS [Concomitant]
     Route: 054
  8. PREDNISONE [Concomitant]
     Route: 048
  9. MERCAPTOPURINE [Concomitant]

REACTIONS (1)
  - VARICELLA [None]
